FAERS Safety Report 8776434 (Version 1)
Quarter: 2012Q4

REPORT INFORMATION
  Report Type: 
  Country: GB (occurrence: GB)
  Receive Date: 20120907
  Receipt Date: 20120907
  Transmission Date: 20130627
  Serious: Yes (Other)
  Sender: FDA-Public Use
  Company Number: PHHY2012GB077363

PATIENT
  Sex: Male

DRUGS (2)
  1. OMEPRAZOLE [Suspect]
     Indication: REFLUX GASTRITIS
     Dosage: UNK
  2. MADOPAR [Interacting]
     Dosage: 4 DF per day

REACTIONS (2)
  - Cardiac disorder [Unknown]
  - Drug interaction [Unknown]
